FAERS Safety Report 23201314 (Version 3)
Quarter: 2023Q4

REPORT INFORMATION
  Report Type: Report from Study
  Country: JP (occurrence: JP)
  Receive Date: 20231118
  Receipt Date: 20231231
  Transmission Date: 20240109
  Serious: Yes (Death, Hospitalization, Disabling, Other)
  Sender: FDA-Public Use
  Company Number: JP-TAKEDA-2023TJP015244

PATIENT
  Age: 81 Year
  Sex: Male
  Weight: 55 kg

DRUGS (1)
  1. LEUPROLIDE ACETATE [Suspect]
     Active Substance: LEUPROLIDE ACETATE
     Indication: Bulbospinal muscular atrophy congenital
     Dosage: 11.25 MILLIGRAM, Q3MONTHS
     Route: 058
     Dates: start: 20180416, end: 20221212

REACTIONS (2)
  - Death [Fatal]
  - Fracture [Recovered/Resolved with Sequelae]

NARRATIVE: CASE EVENT DATE: 20220915
